FAERS Safety Report 7765114-7 (Version None)
Quarter: 2011Q3

REPORT INFORMATION
  Report Type: 
  Country: None (occurrence: None)
  Receive Date: 20110921
  Receipt Date: 20110915
  Transmission Date: 20111222
  Serious: Yes (Hospitalization)
  Sender: FDA-Public Use
  Company Number: AU-ROCHE-802883

PATIENT
  Age: 99 Year
  Sex: Female

DRUGS (2)
  1. XELODA [Suspect]
     Route: 048
  2. ZOLOFT [Suspect]
     Route: 048

REACTIONS (4)
  - RENAL FAILURE [None]
  - OBSESSIVE-COMPULSIVE DISORDER [None]
  - BONE NEOPLASM MALIGNANT [None]
  - DEPRESSION [None]
